FAERS Safety Report 5713906-8 (Version None)
Quarter: 2008Q2

REPORT INFORMATION
  Report Type: 
  Country: None (occurrence: None)
  Receive Date: 20080422
  Receipt Date: 20080422
  Transmission Date: 20081010
  Serious: Yes (Other)
  Sender: FDA-Public Use
  Company Number: None

PATIENT
  Age: 36 Year
  Sex: Female
  Weight: 50.8029 kg

DRUGS (3)
  1. PHENERGAN [Suspect]
     Indication: IMPAIRED GASTRIC EMPTYING
     Dosage: 25 MG EVENING BEFORE BED PO
     Route: 048
     Dates: start: 20040301, end: 20080402
  2. PHENERGAN [Suspect]
     Indication: GASTROINTESTINAL MOTILITY DISORDER
     Dosage: TEASPOON 2 AS NEEDED PO
     Route: 048
     Dates: start: 20070801, end: 20080310
  3. PHENERGAN [Suspect]
     Indication: NAUSEA
     Dosage: TEASPOON 2 AS NEEDED PO
     Route: 048
     Dates: start: 20070801, end: 20080310

REACTIONS (1)
  - CONVULSION [None]
